FAERS Safety Report 10215271 (Version 2)
Quarter: 2014Q2

REPORT INFORMATION
  Report Type: Spontaneous
  Country: GB (occurrence: GB)
  Receive Date: 20140603
  Receipt Date: 20140603
  Transmission Date: 20141212
  Serious: Yes (Other)
  Sender: FDA-Public Use
  Company Number: PHFR2011GB04802

PATIENT
  Age: 30 Year
  Sex: Male

DRUGS (3)
  1. CLOZARIL [Suspect]
     Dosage: UNK
     Route: 048
     Dates: start: 20080102
  2. ARIPIPRAZOLE [Concomitant]
     Dosage: 10 G
     Route: 048
     Dates: start: 20091029
  3. SENNA [Concomitant]
     Indication: CONSTIPATION
     Dosage: 75 G
     Route: 048
     Dates: start: 20091210

REACTIONS (2)
  - White blood cell count increased [Not Recovered/Not Resolved]
  - Neutrophil count increased [Unknown]
